FAERS Safety Report 8458282-5 (Version None)
Quarter: 2012Q2

REPORT INFORMATION
  Report Type: 
  Country: None (occurrence: None)
  Receive Date: 20120622
  Receipt Date: 20120618
  Transmission Date: 20120825
  Serious: No
  Sender: FDA-Public Use
  Company Number: US-B.I. PHARMACEUTICALS,INC./RIDGEFIELD-2012-BP-13947BP

PATIENT
  Sex: Female

DRUGS (2)
  1. HYDROCHLOROTHIAZIDE [Concomitant]
     Indication: FLUID RETENTION
     Dosage: 12.5 MG
     Route: 048
  2. AGGRENOX [Suspect]
     Indication: VERTIGO
     Route: 048
     Dates: start: 20120517

REACTIONS (2)
  - JOINT SWELLING [None]
  - PRURITUS [None]
